FAERS Safety Report 21418896 (Version 2)
Quarter: 2022Q4

REPORT INFORMATION
  Report Type: Spontaneous
  Country: JP (occurrence: JP)
  Receive Date: 20221006
  Receipt Date: 20221222
  Transmission Date: 20230113
  Serious: Yes (Death)
  Sender: FDA-Public Use
  Company Number: JP-FERRINGPH-2022FE05224

PATIENT

DRUGS (3)
  1. DEGARELIX [Suspect]
     Active Substance: DEGARELIX
     Indication: Prostate cancer
     Dosage: 80 MG
     Route: 065
  2. DEGARELIX [Suspect]
     Active Substance: DEGARELIX
     Dosage: 240 MG
     Route: 065
     Dates: start: 202205
  3. CALONAL [Concomitant]
     Active Substance: ACETAMINOPHEN
     Route: 065

REACTIONS (2)
  - Marasmus [Fatal]
  - Jaundice [Recovered/Resolved]

NARRATIVE: CASE EVENT DATE: 20220901
